FAERS Safety Report 11156381 (Version 1)
Quarter: 2015Q2

REPORT INFORMATION
  Report Type: Report from Study
  Country: US (occurrence: US)
  Receive Date: 20150602
  Receipt Date: 20150602
  Transmission Date: 20150821
  Serious: Yes (Hospitalization)
  Sender: FDA-Public Use
  Company Number: US-PFIZER INC-2015183068

PATIENT
  Age: 16 Year

DRUGS (1)
  1. SILDENAFIL CITRATE. [Suspect]
     Active Substance: SILDENAFIL CITRATE
     Indication: CONGENITAL LYMPHOEDEMA
     Dosage: UNK

REACTIONS (2)
  - Toxic shock syndrome [Unknown]
  - Drug ineffective for unapproved indication [Unknown]
